FAERS Safety Report 7493273-2 (Version None)
Quarter: 2011Q2

REPORT INFORMATION
  Report Type: 
  Country: None (occurrence: None)
  Receive Date: 20110520
  Receipt Date: 20110519
  Transmission Date: 20111010
  Serious: Yes (Death)
  Sender: FDA-Public Use
  Company Number: JP-PFIZER INC-2011108294

PATIENT
  Age: 49 Year
  Sex: Male

DRUGS (2)
  1. VARENICLINE TARTRATE [Suspect]
     Dosage: 1 MG PER DAY
     Route: 048
     Dates: start: 20110515
  2. VARENICLINE TARTRATE [Suspect]
     Indication: NICOTINE DEPENDENCE
     Dosage: 0.5 MG PER DAY
     Route: 048
     Dates: start: 20110512, end: 20110514

REACTIONS (1)
  - DEATH [None]
